FAERS Safety Report 8834689 (Version 1)
Quarter: 2012Q4

REPORT INFORMATION
  Report Type: 
  Country: BR (occurrence: BR)
  Receive Date: 20121010
  Receipt Date: 20121010
  Transmission Date: 20130627
  Serious: Yes (Hospitalization, Other)
  Sender: FDA-Public Use
  Company Number: PHHY2012BR089076

PATIENT
  Sex: Female

DRUGS (8)
  1. DIOVAN AMLO FIX [Suspect]
     Indication: HYPERTENSION
     Dosage: 1 DF, daily
     Route: 048
     Dates: start: 201111
  2. ATENOLOL [Concomitant]
     Indication: HYPERTENSION
     Dosage: 50 mg in the morning + 25 mg at night
     Dates: start: 1998
  3. ATENOLOL [Concomitant]
     Indication: PALPITATIONS
  4. ATENOLOL [Concomitant]
     Indication: HEART RATE
  5. FLUOXETINE [Concomitant]
     Indication: DEPRESSION
     Dosage: 1 tablet, daily
     Dates: start: 201205
  6. CITALOPRAM [Concomitant]
     Indication: DEPRESSION
     Dosage: 1 tablet, daily
     Route: 048
     Dates: start: 20120912
  7. CALTRATE WITH VITAMIN D [Concomitant]
     Indication: MINERAL SUPPLEMENTATION
     Dosage: UNK UKN, UNK
     Dates: start: 2002
  8. LORAX [Concomitant]
     Indication: ANXIETY
     Dosage: 2 tablets, daily
     Route: 048
     Dates: start: 1998

REACTIONS (5)
  - Atrioventricular block [Recovered/Resolved]
  - Bradycardia [Recovered/Resolved]
  - Arrhythmia [Recovered/Resolved]
  - Oedema peripheral [Recovered/Resolved]
  - Pain in extremity [Recovered/Resolved]
